FAERS Safety Report 23499681 (Version 1)
Quarter: 2024Q1

REPORT INFORMATION
  Report Type: Report from Study
  Country: US (occurrence: US)
  Receive Date: 20240208
  Receipt Date: 20240208
  Transmission Date: 20240410
  Serious: Yes (Other)
  Sender: FDA-Public Use
  Company Number: US-ABBVIE-5624505

PATIENT
  Sex: Female

DRUGS (17)
  1. VENCLEXTA [Suspect]
     Active Substance: VENETOCLAX
     Indication: Chronic lymphocytic leukaemia
     Dosage: FORM STRENGTH UNITS: 100 MILLIGRAM
     Route: 048
  2. VENCLEXTA [Suspect]
     Active Substance: VENETOCLAX
     Indication: Chronic lymphocytic leukaemia
     Dosage: FORM STRENGTH UNITS: 100 MILLIGRAM
     Route: 048
  3. BACTROBAN [Concomitant]
     Active Substance: MUPIROCIN CALCIUM
     Indication: Wound
     Dosage: FORM STRENGTH UNITS: 2 PERCENT?APPLY TO SKIN APPLY 1 APPLICATION TO SKIN AS NEEDED FOR WOUNDS AS ...
  4. UNITHROID [Concomitant]
     Active Substance: LEVOTHYROXINE SODIUM
     Indication: Thyroid hormone replacement therapy
     Dosage: FORM STRENGTH UNITS: 75 MICROGRAM?TAKE 1 TABLET DAILY BEFORE BREAKFAST REPLACE THYROID HORMONE TA...
  5. HYDRALAZINE [Concomitant]
     Active Substance: HYDRALAZINE HYDROCHLORIDE
     Indication: Hypertension
     Dosage: TAKE 2 TABLET EVERY DAY BETWEEN 10 PM AND 11 PM?FORM STRENGTH UNITS:10 MILLIGRAM
  6. XALATAN [Concomitant]
     Active Substance: LATANOPROST
     Indication: Product used for unknown indication
     Dosage: 0.005% OPHTHALMIC DROP?PUT IN EACH EYE
  7. ALLEGRA [Concomitant]
     Active Substance: FEXOFENADINE HYDROCHLORIDE
     Indication: Product used for unknown indication
     Dosage: TIME INTERVAL: AS NECESSARY: ODT?FORM STRENGTH UNITS:60 MILLIGRAM?TAKE 60 MG BY MOUTH AS NEEDED
  8. ASTELIN [Concomitant]
     Active Substance: AZELASTINE HYDROCHLORIDE
     Indication: Rhinitis allergic
     Dosage: FORM STRENGTH UNITS: 0.1 PERCENT?SPRAY 2 SPRAYS IN BOTH NOSTRILS TWICE DAILY
  9. PEPCID [Concomitant]
     Active Substance: FAMOTIDINE
     Indication: Product used for unknown indication
     Dosage: FORM STRENGTH UNITS:20 MILLIGRAM
  10. NASONEX [Concomitant]
     Active Substance: MOMETASONE FUROATE
     Indication: Rhinitis allergic
     Dosage: 50 MCG/ACTUATION SPRAY?INSTILL 2 SPRAYS IN BOTH NOSTRILS
  11. GAS-X [Concomitant]
     Active Substance: DIMETHICONE
     Indication: Flatulence
     Dosage: TIME INTERVAL: AS NECESSARY: FORM STRENGTH UNITS: 125MILLIGRAM?EXTRA STRENGTH 125 MG CHEWABLE TAB...
  12. BIOTIN [Concomitant]
     Active Substance: BIOTIN
     Indication: Product used for unknown indication
     Dosage: TAKE BY MOUTH EVERY DAY FOLLOW INSTRUCTION AS DIRECTED?FORM STRENGTH UNITS: 500 MICROGRAM
  13. AMOXIL [Concomitant]
     Active Substance: AMOXICILLIN
     Indication: Product used for unknown indication
     Dosage: FORM STRENGTH UNITS: 500 MILLIGRAM?TAKE 4 CAPSULE BY MOUTH ONE HOUR PRIOR TO APPOINTMENT
  14. ZOVIRAX [Concomitant]
     Active Substance: ACYCLOVIR
     Indication: Viral infection
     Dosage: FORM STRENGTH UNITS: 400 MILLIGRAM
  15. FOSAMAX [Concomitant]
     Active Substance: ALENDRONATE SODIUM
     Indication: Osteoporosis
     Dosage: FORM STRENGTH UNITS: 70 MILLIGRAM?1/2 HOUR BEFORE BREAKFAST WITH WATER AND REMAIN UPRIGHT FOR?30 ...
  16. CALCIUM CITRATE\CHOLECALCIFEROL [Concomitant]
     Active Substance: CALCIUM CITRATE\CHOLECALCIFEROL
     Indication: Product used for unknown indication
     Dosage: 500 MG- 400 UNIT ORAL?FREQUENCY TEXT: CHEW TAKE BY MOUTH
  17. COZAAR [Concomitant]
     Active Substance: LOSARTAN POTASSIUM
     Indication: Hypertension
     Dosage: FORM STRENGTH UNITS: 25 MILLIGRAM

REACTIONS (1)
  - Hospice care [Not Recovered/Not Resolved]
